FAERS Safety Report 8449086-8 (Version None)
Quarter: 2012Q2

REPORT INFORMATION
  Report Type: 
  Country: None (occurrence: None)
  Receive Date: 20120619
  Receipt Date: 20120608
  Transmission Date: 20120825
  Serious: Yes (Hospitalization)
  Sender: FDA-Public Use
  Company Number: AU-JNJFOC-20120108958

PATIENT
  Sex: Male
  Weight: 62.2 kg

DRUGS (9)
  1. PREDNISONE [Suspect]
     Indication: PROSTATE CANCER METASTATIC
     Route: 065
     Dates: start: 20111027
  2. ELIGARD [Concomitant]
     Indication: HORMONE THERAPY
     Route: 065
     Dates: start: 20090420
  3. PANADOL OSTEO [Concomitant]
     Indication: OSTEOARTHRITIS
     Route: 065
     Dates: start: 20120105
  4. OXYCODONE HCL [Concomitant]
     Indication: HEADACHE
     Route: 065
     Dates: start: 20120118
  5. XALATAN [Concomitant]
     Indication: GLAUCOMA
     Route: 065
     Dates: start: 19800101
  6. BRIMONIDINE TARTRATE [Concomitant]
     Indication: GLAUCOMA
     Route: 047
     Dates: start: 19800101
  7. ABIRATERONE ACETATE [Suspect]
     Indication: PROSTATE CANCER METASTATIC
     Route: 048
     Dates: start: 20111028, end: 20120105
  8. MAXALT [Concomitant]
     Indication: HEADACHE
     Route: 065
     Dates: start: 20111001
  9. ABIRATERONE ACETATE [Suspect]
     Route: 048

REACTIONS (1)
  - DIZZINESS [None]
